FAERS Safety Report 8376319-9 (Version None)
Quarter: 2012Q2

REPORT INFORMATION
  Report Type: 
  Country: None (occurrence: None)
  Receive Date: 20120517
  Receipt Date: 20120503
  Transmission Date: 20120825
  Serious: Yes (Hospitalization, Other)
  Sender: FDA-Public Use
  Company Number: 201205IM002535

PATIENT
  Age: 21 Year
  Sex: Male

DRUGS (5)
  1. GARDASIL [Suspect]
  2. VALPROATE SODIUM [Concomitant]
  3. INTERFERON GAMMA NOS [Suspect]
  4. CIPROFLOXACIN [Concomitant]
  5. CLINDAMYCIN [Concomitant]

REACTIONS (2)
  - DRUG INTERACTION [None]
  - MYOCLONUS [None]
